FAERS Safety Report 5825116-4 (Version None)
Quarter: 2008Q3

REPORT INFORMATION
  Report Type: 
  Country: None (occurrence: None)
  Receive Date: 20080729
  Receipt Date: 20080717
  Transmission Date: 20090109
  Serious: Yes (Death, Life-Threatening, Other)
  Sender: FDA-Public Use
  Company Number: GB-JNJFOC-20080704483

PATIENT
  Sex: Female
  Weight: 70 kg

DRUGS (11)
  1. REMICADE [Suspect]
     Indication: RHEUMATOID ARTHRITIS
     Route: 042
  2. METHOTREXATE [Concomitant]
  3. ATROVENT [Concomitant]
  4. CALCITRIOL [Concomitant]
  5. CO-DYDRAMOL [Concomitant]
  6. FERROUS SULFATE TAB [Concomitant]
  7. FOLIC ACID [Concomitant]
  8. FOSAMAX [Concomitant]
  9. LEVOTHYROXINE SODIUM [Concomitant]
  10. VENTOLIN [Concomitant]
  11. VIOXX [Concomitant]

REACTIONS (1)
  - DEATH [None]
